FAERS Safety Report 4962150-0 (Version None)
Quarter: 2006Q2

REPORT INFORMATION
  Report Type: 
  Country: None (occurrence: None)
  Receive Date: 20060404
  Receipt Date: 20060322
  Transmission Date: 20061013
  Serious: Yes (Disabling)
  Sender: FDA-Public Use
  Company Number: PHBS2006BR04509

PATIENT
  Age: 51 Year
  Sex: Female

DRUGS (5)
  1. VOLTAREN (NVO) [Suspect]
     Indication: INFLAMMATION
     Dosage: 4 DRPS/DAY
     Dates: end: 20050901
  2. METICORTEN [Concomitant]
     Dosage: 20 MG/DAY
  3. CYLOCORT [Concomitant]
  4. ATROPINA [Concomitant]
     Dosage: 0.5 MG/DAY
  5. PRESMIN [Concomitant]

REACTIONS (8)
  - ACTIVITIES OF DAILY LIVING IMPAIRED [None]
  - BLINDNESS [None]
  - DEPOSIT EYE [None]
  - DEPRESSED MOOD [None]
  - EYE LASER SURGERY [None]
  - GLAUCOMA [None]
  - HEADACHE [None]
  - WEIGHT DECREASED [None]
